FAERS Safety Report 7501218-1 (Version None)
Quarter: 2011Q2

REPORT INFORMATION
  Report Type: 
  Country: None (occurrence: None)
  Receive Date: 20110524
  Receipt Date: 20110509
  Transmission Date: 20111010
  Serious: No
  Sender: FDA-Public Use
  Company Number: US-B.I. PHARMACEUTICALS,INC./RIDGEFIELD-2011-BP-12554BP

PATIENT
  Age: 72 Year
  Sex: Female

DRUGS (9)
  1. PREDNISONE [Concomitant]
     Indication: ADRENAL GLAND INJURY
  2. PRADAXA [Suspect]
     Dosage: 150 MG
     Route: 048
     Dates: start: 20110411, end: 20110420
  3. METOPROLOL [Concomitant]
     Indication: HYPERTENSION
  4. DIOVAN [Concomitant]
     Indication: HYPERTENSION
  5. PRADAXA [Suspect]
     Indication: ATRIAL FIBRILLATION
     Dosage: 300 MG
     Route: 048
     Dates: start: 20110331, end: 20110410
  6. JANUVIA [Concomitant]
     Indication: TYPE 2 DIABETES MELLITUS
  7. PREDNISONE [Concomitant]
     Indication: HYPOTHALAMO-PITUITARY DISORDER
  8. PRADAXA [Suspect]
     Route: 048
     Dates: start: 20110421
  9. HYDRALAZINE HCL [Concomitant]
     Indication: HYPERTENSION

REACTIONS (2)
  - HEADACHE [None]
  - EPISTAXIS [None]
